FAERS Safety Report 15954397 (Version 1)
Quarter: 2019Q1

REPORT INFORMATION
  Report Type: Spontaneous
  Country: DE (occurrence: DE)
  Receive Date: 20190212
  Receipt Date: 20190212
  Transmission Date: 20190417
  Serious: Yes (Congenital Anomaly, Other)
  Sender: FDA-Public Use
  Company Number: DE-MYLANLABS-2019M1011900

PATIENT
  Age: 1 Day
  Sex: Female
  Weight: .99 kg

DRUGS (3)
  1. AZATHIOPRINE. [Suspect]
     Active Substance: AZATHIOPRINE
     Indication: RHEUMATOID ARTHRITIS
     Dosage: 200 MILLIGRAM, QD (200MG/D)
     Route: 064
     Dates: start: 20170212, end: 20170907
  2. PREDNISOLONE. [Suspect]
     Active Substance: PREDNISOLONE
     Indication: RHEUMATOID ARTHRITIS
     Dosage: 15 MILLIGRAM, QD (15 MG/D )
     Route: 064
     Dates: start: 20170212, end: 20170907
  3. L-THYROXIN                         /00068002/ [Concomitant]
     Active Substance: LEVOTHYROXINE SODIUM
     Indication: HYPOTHYROIDISM
     Dosage: UNK
     Route: 064

REACTIONS (6)
  - Patent ductus arteriosus [Recovered/Resolved]
  - Foetal exposure during pregnancy [Recovered/Resolved]
  - Pericardial effusion [Recovered/Resolved]
  - Atrial septal defect [Not Recovered/Not Resolved]
  - Hydrops foetalis [Recovered/Resolved]
  - Pancytopenia [Recovered/Resolved]

NARRATIVE: CASE EVENT DATE: 20170907
